FAERS Safety Report 24654633 (Version 1)
Quarter: 2024Q4

REPORT INFORMATION
  Report Type: Spontaneous
  Country: JP (occurrence: JP)
  Receive Date: 20241122
  Receipt Date: 20241122
  Transmission Date: 20250115
  Serious: Yes (Hospitalization)
  Sender: LUNDBECK
  Company Number: JP-LUNDBECK-DKLU4006877

PATIENT

DRUGS (1)
  1. DROXIDOPA [Suspect]
     Active Substance: DROXIDOPA
     Indication: Dialysis
     Route: 048

REACTIONS (2)
  - Cardiac failure [Unknown]
  - Physical deconditioning [Unknown]
